FAERS Safety Report 9517820 (Version 1)
Quarter: 2013Q3

REPORT INFORMATION
  Report Type: Spontaneous
  Country: US (occurrence: US)
  Receive Date: 20130912
  Receipt Date: 20130912
  Transmission Date: 20140515
  Serious: No
  Sender: FDA-Public Use
  Company Number: US-B.I. PHARMACEUTICALS,INC./RIDGEFIELD-2013-BI-27087BP

PATIENT
  Age: 70 Year
  Sex: Female
  Weight: 62 kg

DRUGS (10)
  1. SPIRIVA [Suspect]
     Indication: BRONCHITIS CHRONIC
     Dosage: 18 MCG
     Route: 055
     Dates: start: 201211
  2. SWISH AND SWALLOW [Concomitant]
     Indication: CANDIDA INFECTION
     Route: 048
  3. VENTOLIN INHALER [Concomitant]
     Indication: BRONCHITIS CHRONIC
     Route: 055
  4. ABRAXANE [Concomitant]
     Indication: NEOPLASM MALIGNANT
  5. VITAMIN D [Concomitant]
     Route: 048
  6. COMPAZINE [Concomitant]
     Indication: NAUSEA
     Route: 048
  7. GABAPENTIN [Concomitant]
     Indication: HYPOAESTHESIA
     Route: 048
  8. PEPCID [Concomitant]
     Indication: GASTRITIS
     Dosage: 20 MG
     Route: 048
  9. INSTANT PROTIEN POWDER [Concomitant]
     Route: 048
  10. POTASSIUM [Concomitant]
     Route: 048

REACTIONS (5)
  - Breast mass [Not Recovered/Not Resolved]
  - Herpes zoster [Not Recovered/Not Resolved]
  - Cataract [Recovered/Resolved]
  - Product quality issue [Recovered/Resolved]
  - Product quality issue [Recovered/Resolved]
